FAERS Safety Report 4860421-X (Version None)
Quarter: 2005Q4

REPORT INFORMATION
  Report Type: 
  Country: None (occurrence: None)
  Receive Date: 20051215
  Receipt Date: 20051202
  Transmission Date: 20060501
  Serious: Yes (Other)
  Sender: FDA-Public Use
  Company Number: 2005142719

PATIENT
  Sex: Female

DRUGS (2)
  1. ZMAX [Suspect]
     Indication: ILL-DEFINED DISORDER
     Dosage: (1 IN 2 D),
     Dates: start: 20050923, end: 20050925
  2. CEPHALOSPORINS AND RELATED SUBSTANCES (CEPHALOSPORINS AND RELATED SUBS [Concomitant]

REACTIONS (1)
  - VAGINAL HAEMORRHAGE [None]
